FAERS Safety Report 6462339-8 (Version None)
Quarter: 2009Q4

REPORT INFORMATION
  Report Type: 
  Country: None (occurrence: None)
  Receive Date: 20091130
  Receipt Date: 20091118
  Transmission Date: 20100525
  Serious: Yes (Hospitalization)
  Sender: FDA-Public Use
  Company Number: JP-ASTRAZENECA-2009AC01012

PATIENT
  Age: 30398 Day
  Sex: Male

DRUGS (6)
  1. MEROPEN [Suspect]
     Indication: PNEUMONIA ASPIRATION
     Route: 042
     Dates: start: 20090205, end: 20090212
  2. VANCOMYCIN [Suspect]
     Indication: PNEUMONIA STAPHYLOCOCCAL
     Route: 065
     Dates: start: 20090205, end: 20090209
  3. OMEPRAL [Concomitant]
     Indication: PROPHYLAXIS AGAINST GASTROINTESTINAL ULCER
     Dates: start: 20090201
  4. PREDOPA [Concomitant]
     Indication: BLOOD PRESSURE DECREASED
     Dates: start: 20090210, end: 20090217
  5. ALBUMIN (HUMAN) [Concomitant]
     Dates: start: 20090210
  6. ALBUMIN (HUMAN) [Concomitant]
     Dates: start: 20090212

REACTIONS (2)
  - BLOOD PRESSURE DECREASED [None]
  - PANCYTOPENIA [None]
